FAERS Safety Report 4509280-5 (Version None)
Quarter: 2004Q4

REPORT INFORMATION
  Report Type: 
  Country: None (occurrence: None)
  Receive Date: 20041025
  Receipt Date: 20040709
  Transmission Date: 20050328
  Serious: Yes (Other)
  Sender: FDA-Public Use
  Company Number: US-JNJFOC-20040702925

PATIENT
  Age: 49 Year
  Sex: Male

DRUGS (16)
  1. INFLIXIMAB (INFLIXIMAB, RECOMBINANT) LYOPHILIZED POWDER [Suspect]
     Indication: RHEUMATOID ARTHRITIS
     Dosage: 4 VIALS MONTHLY
     Dates: start: 20010207
  2. ETODOLAC [Concomitant]
  3. FOLIC ACID [Concomitant]
  4. HYDROCODONE (HYDROCODONE) [Concomitant]
  5. LOPERAMIDE HCL [Concomitant]
  6. METHOTREXATE SODIUM [Concomitant]
  7. NIZORAL [Concomitant]
  8. PREDNISONE [Concomitant]
  9. PROVENTIL [Concomitant]
  10. DURATUSS (RESPAIRE-SR-120) [Concomitant]
  11. ZANAFLEX [Concomitant]
  12. FLOVENT [Concomitant]
  13. TRICOR [Concomitant]
  14. CLARINEX [Concomitant]
  15. RHINOCORT [Concomitant]
  16. FIBERCON (POLYCARBOPHIL CALCIUM) [Concomitant]

REACTIONS (1)
  - INFECTION [None]
